FAERS Safety Report 20906759 (Version 7)
Quarter: 2023Q1

REPORT INFORMATION
  Report Type: Report from Study
  Country: US (occurrence: US)
  Receive Date: 20220602
  Receipt Date: 20230206
  Transmission Date: 20230417
  Serious: Yes (Hospitalization, Other)
  Sender: FDA-Public Use
  Company Number: US-BoehringerIngelheim-2021-BI-106214

PATIENT
  Age: 70 Year
  Sex: Female

DRUGS (8)
  1. OFEV [Suspect]
     Active Substance: NINTEDANIB
     Indication: Idiopathic pulmonary fibrosis
     Route: 048
     Dates: start: 20210421
  2. OFEV [Suspect]
     Active Substance: NINTEDANIB
     Indication: Pulmonary arterial hypertension
     Route: 048
  3. OFEV [Suspect]
     Active Substance: NINTEDANIB
     Indication: Hypoxia
  4. OFEV [Suspect]
     Active Substance: NINTEDANIB
     Indication: Lung disorder
  5. TYVASO [Suspect]
     Active Substance: TREPROSTINIL
     Indication: Pulmonary arterial hypertension
     Route: 055
     Dates: start: 20220516
  6. TYVASO [Suspect]
     Active Substance: TREPROSTINIL
     Indication: Hypoxia
     Dosage: 0.6MG/ML 10 BREATHS, 0.6MG/ML 21 BREATHS
     Route: 055
     Dates: start: 20220523
  7. TYVASO [Suspect]
     Active Substance: TREPROSTINIL
     Indication: Lung disorder
     Dates: start: 2022
  8. TYVASO [Suspect]
     Active Substance: TREPROSTINIL
     Dosage: 0.6MG/ML 15 BREATHS
     Route: 055

REACTIONS (13)
  - Pulmonary hypertension [Recovered/Resolved]
  - Hypertension [Unknown]
  - Blood pressure systolic increased [Not Recovered/Not Resolved]
  - Nausea [Unknown]
  - Throat irritation [Unknown]
  - Dysphonia [Not Recovered/Not Resolved]
  - Decreased appetite [Not Recovered/Not Resolved]
  - Headache [Not Recovered/Not Resolved]
  - Cough [Not Recovered/Not Resolved]
  - Diarrhoea [Unknown]
  - Fatigue [Unknown]
  - Intentional product use issue [Unknown]
  - Inflammation [Unknown]
